FAERS Safety Report 9739179 (Version 2)
Quarter: 2014Q1

REPORT INFORMATION
  Report Type: Spontaneous
  Country: US (occurrence: US)
  Receive Date: 20131209
  Receipt Date: 20140121
  Transmission Date: 20141002
  Serious: No
  Sender: FDA-Public Use
  Company Number: US-009507513-1311USA011180

PATIENT
  Age: 19 Year
  Sex: Female
  Weight: 68.93 kg

DRUGS (2)
  1. NEXPLANON [Suspect]
     Indication: CONTRACEPTION
     Dosage: 68 MG, 1 ROD EVERY 3 YEARS (VALID FOR 3 YEARS AFTER INSERTION) IN LEFT ARM
     Route: 059
     Dates: start: 20130807, end: 20131205
  2. NEXPLANON [Suspect]
     Dosage: VALID FOR 3 YEAR AFTER INSERTION
     Route: 059
     Dates: start: 20131205

REACTIONS (2)
  - Device kink [Recovered/Resolved]
  - No adverse event [Unknown]
